FAERS Safety Report 9176617 (Version 2)
Quarter: 2013Q2

REPORT INFORMATION
  Report Type: Spontaneous
  Country: FR (occurrence: FR)
  Receive Date: 20130321
  Receipt Date: 20130514
  Transmission Date: 20140414
  Serious: Yes (Other)
  Sender: FDA-Public Use
  Company Number: FR-JNJFOC-20130305742

PATIENT
  Sex: Female
  Weight: 68 kg

DRUGS (5)
  1. DUROGESIC [Suspect]
     Indication: ANKYLOSING SPONDYLITIS
     Route: 062
     Dates: start: 2006
  2. DUROGESIC [Suspect]
     Indication: ANKYLOSING SPONDYLITIS
     Route: 062
     Dates: start: 1998
  3. REMICADE [Suspect]
     Indication: ANKYLOSING SPONDYLITIS
     Dosage: RECEIVED ABOUT 100 INJECTIONS
     Route: 042
     Dates: start: 2000
  4. REMICADE [Suspect]
     Indication: ANKYLOSING SPONDYLITIS
     Route: 042
     Dates: start: 1999
  5. FIVASA [Concomitant]
     Indication: CROHN^S DISEASE
     Route: 048
     Dates: start: 1998

REACTIONS (2)
  - Decreased appetite [Not Recovered/Not Resolved]
  - Weight increased [Not Recovered/Not Resolved]
